FAERS Safety Report 8800435 (Version 2)
Quarter: 2015Q2

REPORT INFORMATION
  Report Type: Report from Study
  Country: US (occurrence: US)
  Receive Date: 20120921
  Receipt Date: 20150630
  Transmission Date: 20150821
  Serious: Yes (Death, Other)
  Sender: FDA-Public Use
  Company Number: US-ROCHE-1125689

PATIENT
  Sex: Female

DRUGS (39)
  1. AVASTIN [Suspect]
     Active Substance: BEVACIZUMAB
     Route: 042
     Dates: start: 20060907
  2. CYTOXAN [Concomitant]
     Active Substance: CYCLOPHOSPHAMIDE
  3. METHOTREXATE [Concomitant]
     Active Substance: METHOTREXATE
  4. DIPHENHYDRAMINE HCL [Concomitant]
     Active Substance: DIPHENHYDRAMINE HYDROCHLORIDE
     Route: 042
  5. BENADRYL [Concomitant]
     Active Substance: DIPHENHYDRAMINE HYDROCHLORIDE
     Route: 042
  6. AVASTIN [Suspect]
     Active Substance: BEVACIZUMAB
     Indication: BREAST CANCER FEMALE
     Route: 042
     Dates: start: 20060610
  7. ADRIAMYCIN [Concomitant]
     Active Substance: DOXORUBICIN HYDROCHLORIDE
     Route: 042
  8. TAXOTERE [Concomitant]
     Active Substance: DOCETAXEL
  9. ARIMIDEX [Concomitant]
     Active Substance: ANASTROZOLE
  10. CARBOPLATIN. [Concomitant]
     Active Substance: CARBOPLATIN
     Route: 042
  11. HEPARIN [Concomitant]
     Active Substance: HEPARIN SODIUM
  12. DOCETAXEL. [Concomitant]
     Active Substance: DOCETAXEL
     Route: 042
  13. CYCLOPHOSPHAMIDE. [Concomitant]
     Active Substance: CYCLOPHOSPHAMIDE
     Route: 042
  14. FLUOROURACIL. [Concomitant]
     Active Substance: FLUOROURACIL
  15. GEMCITABINE [Concomitant]
     Active Substance: GEMCITABINE\GEMCITABINE HYDROCHLORIDE
  16. ARIMIDEX [Concomitant]
     Active Substance: ANASTROZOLE
  17. PRAVACHOL [Concomitant]
     Active Substance: PRAVASTATIN SODIUM
     Route: 048
  18. CYTOXAN [Concomitant]
     Active Substance: CYCLOPHOSPHAMIDE
     Route: 042
  19. TAMOXIFEN [Concomitant]
     Active Substance: TAMOXIFEN
  20. TAMOXIFEN [Concomitant]
     Active Substance: TAMOXIFEN
  21. TAXOL [Concomitant]
     Active Substance: PACLITAXEL
     Route: 042
  22. DOCETAXEL. [Concomitant]
     Active Substance: DOCETAXEL
     Route: 042
  23. GRANISETRON HYDROCHLORIDE. [Concomitant]
     Active Substance: GRANISETRON HYDROCHLORIDE
     Route: 042
  24. AVASTIN [Suspect]
     Active Substance: BEVACIZUMAB
     Route: 042
  25. XELODA [Suspect]
     Active Substance: CAPECITABINE
     Indication: BREAST CANCER FEMALE
     Route: 065
  26. CARBOPLATIN. [Concomitant]
     Active Substance: CARBOPLATIN
     Route: 042
  27. KYTRIL [Concomitant]
     Active Substance: GRANISETRON HYDROCHLORIDE
     Route: 065
  28. 5-FU [Concomitant]
     Active Substance: FLUOROURACIL
  29. DECADRON [Concomitant]
     Active Substance: DEXAMETHASONE
     Route: 042
  30. DYAZIDE [Concomitant]
     Active Substance: HYDROCHLOROTHIAZIDE\TRIAMTERENE
     Route: 048
  31. HYDROCORTISONE. [Concomitant]
     Active Substance: HYDROCORTISONE
     Route: 042
  32. GEMCITABINE HCL [Concomitant]
     Active Substance: GEMCITABINE HYDROCHLORIDE
     Route: 042
  33. AVASTIN [Suspect]
     Active Substance: BEVACIZUMAB
     Route: 042
     Dates: start: 20080407
  34. GEMZAR [Concomitant]
     Active Substance: GEMCITABINE HYDROCHLORIDE
     Route: 042
  35. FLONASE (UNITED STATES) [Concomitant]
  36. FEMARA [Concomitant]
     Active Substance: LETROZOLE
     Route: 065
  37. RANITIDINE [Concomitant]
     Active Substance: RANITIDINE\RANITIDINE HYDROCHLORIDE
     Route: 042
  38. DEXAMETHASONE. [Concomitant]
     Active Substance: DEXAMETHASONE
     Route: 042
  39. METHOTREXATE [Concomitant]
     Active Substance: METHOTREXATE

REACTIONS (14)
  - Neutropenia [Unknown]
  - Joint stiffness [Unknown]
  - Musculoskeletal stiffness [Unknown]
  - Fatigue [Unknown]
  - Epistaxis [Unknown]
  - Myalgia [Unknown]
  - Pyrexia [Unknown]
  - Constipation [Unknown]
  - Arthralgia [Unknown]
  - Death [Fatal]
  - Decreased appetite [Unknown]
  - Back pain [Unknown]
  - Bone marrow failure [Unknown]
  - Nausea [Unknown]
